FAERS Safety Report 10146825 (Version 1)
Quarter: 2014Q2

REPORT INFORMATION
  Report Type: Spontaneous
  Country: GB (occurrence: None)
  Receive Date: 20140429
  Receipt Date: 20140429
  Transmission Date: 20141212
  Serious: Yes (Other)
  Sender: FDA-Public Use
  Company Number: AUR-APL-2014-04699

PATIENT
  Sex: Male
  Weight: 85 kg

DRUGS (1)
  1. QUETIAPINE (QUETIAPNIE) [Suspect]
     Indication: PRODUCT USED FOR UNKNOWN INDICATION

REACTIONS (2)
  - Catatonia [None]
  - Bipolar I disorder [None]
